FAERS Safety Report 5741306-3 (Version None)
Quarter: 2008Q2

REPORT INFORMATION
  Report Type: 
  Country: None (occurrence: None)
  Receive Date: 20080515
  Receipt Date: 20080506
  Transmission Date: 20081010
  Serious: Yes (Hospitalization)
  Sender: FDA-Public Use
  Company Number: 2008S1007727

PATIENT
  Age: 53 Year
  Sex: Female

DRUGS (3)
  1. ATENOLOL [Suspect]
     Indication: HYPERTENSION
  2. MIDAZOLAM HCL [Suspect]
     Indication: SEDATIVE THERAPY
     Dosage: 2 MG
  3. ANTINEOPLASTIC AGENTS [Concomitant]

REACTIONS (2)
  - CARDIAC ARREST [None]
  - CENTRAL VENOUS PRESSURE ABNORMAL [None]
